FAERS Safety Report 8872699 (Version 1)
Quarter: 2012Q4

REPORT INFORMATION
  Report Type: 
  Country: NL (occurrence: NL)
  Receive Date: 20121029
  Receipt Date: 20121029
  Transmission Date: 20130627
  Serious: Yes (Hospitalization)
  Sender: FDA-Public Use
  Company Number: NL-MYLANLABS-2012S1021798

PATIENT
  Age: 52 Year
  Sex: Male

DRUGS (8)
  1. ADALIMUMAB [Suspect]
     Indication: PSORIATIC ARTHROPATHY
     Route: 065
  2. ETANERCEPT [Suspect]
     Indication: PSORIATIC ARTHROPATHY
     Route: 065
  3. INFLIXIMAB [Suspect]
     Indication: PSORIATIC ARTHROPATHY
     Route: 042
  4. METHOTREXATE [Suspect]
     Indication: PSORIATIC ARTHROPATHY
     Dosage: 15 mg/week
     Route: 065
  5. METHYLPREDNISOLONE [Suspect]
     Indication: PSORIATIC ARTHROPATHY
     Route: 065
  6. PREDNISONE [Suspect]
     Indication: PSORIATIC ARTHROPATHY
     Dosage: 30mg [frequency not stated]
     Route: 065
  7. ASPIRIN [Concomitant]
     Route: 065
  8. FOLIC ACID [Concomitant]
     Route: 065

REACTIONS (1)
  - Whipple^s disease [Not Recovered/Not Resolved]
